FAERS Safety Report 11595093 (Version 1)
Quarter: 2015Q4

REPORT INFORMATION
  Report Type: Spontaneous
  Country: US (occurrence: US)
  Receive Date: 20151006
  Receipt Date: 20151006
  Transmission Date: 20160304
  Serious: Yes (Other)
  Sender: FDA-Public Use
  Company Number: US-BRISTOL-MYERS SQUIBB COMPANY-BMS-2015-065529

PATIENT
  Sex: Female

DRUGS (1)
  1. ABILIFY [Suspect]
     Active Substance: ARIPIPRAZOLE
     Indication: SCHIZOAFFECTIVE DISORDER
     Dosage: 5 MG, QD
     Route: 065

REACTIONS (6)
  - Frustration [Not Recovered/Not Resolved]
  - Spinal column stenosis [Not Recovered/Not Resolved]
  - Asthenopia [Not Recovered/Not Resolved]
  - Disturbance in attention [Not Recovered/Not Resolved]
  - Fuchs^ syndrome [Not Recovered/Not Resolved]
  - Stress [Not Recovered/Not Resolved]
